FAERS Safety Report 21588758 (Version 11)
Quarter: 2024Q4

REPORT INFORMATION
  Report Type: Spontaneous
  Country: US (occurrence: US)
  Receive Date: 20221114
  Receipt Date: 20241203
  Transmission Date: 20250115
  Serious: No
  Sender: BRISTOL-MYERS SQUIBB COMPANY
  Company Number: US-BRISTOL-MYERS SQUIBB COMPANY-2022-137028

PATIENT
  Age: 63 Year
  Sex: Female

DRUGS (5)
  1. ORENCIA [Suspect]
     Active Substance: ABATACEPT
     Indication: Rheumatoid arthritis
     Route: 058
     Dates: start: 20220511
  2. ORENCIA [Suspect]
     Active Substance: ABATACEPT
     Route: 058
     Dates: start: 20220505
  3. ORENCIA [Suspect]
     Active Substance: ABATACEPT
     Route: 058
     Dates: start: 202205
  4. ORENCIA [Suspect]
     Active Substance: ABATACEPT
     Route: 058
     Dates: start: 202205
  5. ORENCIA [Suspect]
     Active Substance: ABATACEPT
     Route: 058
     Dates: start: 202205

REACTIONS (12)
  - Aphthous ulcer [Unknown]
  - Sinusitis [Unknown]
  - Nasal crusting [Unknown]
  - Nasal dryness [Unknown]
  - Dry eye [Unknown]
  - Visual impairment [Unknown]
  - Eye allergy [Unknown]
  - Eye pruritus [Unknown]
  - Dyspnoea [Unknown]
  - Drug ineffective [Unknown]
  - Ear discomfort [Unknown]
  - Arthralgia [Unknown]
